FAERS Safety Report 12806358 (Version 1)
Quarter: 2016Q4

REPORT INFORMATION
  Report Type: Spontaneous
  Country: US (occurrence: US)
  Receive Date: 20161003
  Receipt Date: 20161003
  Transmission Date: 20170207
  Serious: Yes (Other)
  Sender: FDA-Public Use
  Company Number: None

PATIENT
  Age: 21 Year
  Sex: Female
  Weight: 58.5 kg

DRUGS (4)
  1. LEXIPRO [Concomitant]
  2. GILDESS [Concomitant]
     Active Substance: ETHINYL ESTRADIOL\NORETHINDRONE ACETATE
  3. GILDESS [Suspect]
     Active Substance: ETHINYL ESTRADIOL\NORETHINDRONE ACETATE
     Indication: OVARIAN CYST
     Dosage: ?          QUANTITY:1 TABLET(S);?
     Route: 048
     Dates: start: 20130815, end: 20161003
  4. GILDESS [Suspect]
     Active Substance: ETHINYL ESTRADIOL\NORETHINDRONE ACETATE
     Indication: PREGNANCY ON CONTRACEPTIVE
     Dosage: ?          QUANTITY:1 TABLET(S);?
     Route: 048
     Dates: start: 20130815, end: 20161003

REACTIONS (7)
  - Product packaging issue [None]
  - Pregnancy on contraceptive [None]
  - Migraine [None]
  - Menstruation irregular [None]
  - Abortion spontaneous [None]
  - Hormone level abnormal [None]
  - Emotional disorder [None]

NARRATIVE: CASE EVENT DATE: 20160509
